FAERS Safety Report 9720916 (Version 2)
Quarter: 2013Q4

REPORT INFORMATION
  Report Type: Spontaneous
  Country: DE (occurrence: DE)
  Receive Date: 20131129
  Receipt Date: 20131129
  Transmission Date: 20140711
  Serious: Yes (Other)
  Sender: FDA-Public Use
  Company Number: DE-B.I. PHARMACEUTICALS,INC./RIDGEFIELD-2013-BI-30259DE

PATIENT
  Sex: Female
  Weight: 80 kg

DRUGS (1)
  1. AGGRENOX [Suspect]
     Dates: start: 20130920

REACTIONS (2)
  - Brain neoplasm [Unknown]
  - Headache [Unknown]
